FAERS Safety Report 14582872 (Version 1)
Quarter: 2018Q1

REPORT INFORMATION
  Report Type: Spontaneous
  Country: US (occurrence: US)
  Receive Date: 20180227
  Receipt Date: 20180227
  Transmission Date: 20180509
  Serious: Yes (Hospitalization)
  Sender: FDA-Public Use
  Company Number: None

PATIENT
  Age: 60 Year
  Sex: Male
  Weight: 73.4 kg

DRUGS (1)
  1. ABIRATERONE [Suspect]
     Active Substance: ABIRATERONE
     Indication: PROSTATE CANCER STAGE IV
     Route: 048
     Dates: start: 20160201, end: 20170503

REACTIONS (3)
  - Spinal pain [None]
  - Pancreatitis [None]
  - Laboratory test abnormal [None]

NARRATIVE: CASE EVENT DATE: 20170517
